FAERS Safety Report 4977966-4 (Version None)
Quarter: 2006Q2

REPORT INFORMATION
  Report Type: 
  Country: None (occurrence: None)
  Receive Date: 20060420
  Receipt Date: 20040430
  Transmission Date: 20061013
  Serious: Yes (Hospitalization)
  Sender: FDA-Public Use
  Company Number: 2004AP02774

PATIENT
  Age: 28078 Day
  Sex: Female

DRUGS (12)
  1. ACCOLATE [Suspect]
     Indication: ASTHMA
     Route: 048
     Dates: start: 20030912, end: 20040124
  2. ACCOLATE [Suspect]
     Route: 048
     Dates: start: 20040125, end: 20040318
  3. SEREVENT [Suspect]
     Indication: ASTHMA
     Route: 055
     Dates: start: 20031107
  4. PREDONINE [Concomitant]
     Indication: ASTHMA
     Route: 048
     Dates: start: 20031110, end: 20031113
  5. PREDONINE [Concomitant]
     Route: 048
     Dates: start: 20031114, end: 20031120
  6. PREDONINE [Concomitant]
     Route: 048
     Dates: start: 20031121, end: 20031129
  7. PREDONINE [Concomitant]
     Route: 048
     Dates: start: 20031130, end: 20031206
  8. DEPAS [Concomitant]
     Indication: INSOMNIA
     Route: 048
     Dates: start: 20031121, end: 20031204
  9. ONON [Concomitant]
     Indication: ASTHMA
     Route: 048
     Dates: end: 20030912
  10. THEO-DUR [Concomitant]
     Indication: ASTHMA
     Route: 048
     Dates: end: 20030912
  11. PULMICORT [Concomitant]
     Indication: ASTHMA
     Route: 055
     Dates: start: 20031018
  12. LENDORMIN [Concomitant]
     Indication: INSOMNIA
     Dates: start: 20040312, end: 20040318

REACTIONS (2)
  - CEREBRAL INFARCTION [None]
  - GAMMA-GLUTAMYLTRANSFERASE INCREASED [None]
